FAERS Safety Report 13686617 (Version 2)
Quarter: 2017Q3

REPORT INFORMATION
  Report Type: Spontaneous
  Country: US (occurrence: US)
  Receive Date: 20170623
  Receipt Date: 20170801
  Transmission Date: 20171127
  Serious: Yes (Hospitalization, Other)
  Sender: FDA-Public Use
  Company Number: US-009507513-1706USA008758

PATIENT
  Age: 81 Year
  Sex: Male
  Weight: 73.5 kg

DRUGS (2)
  1. XARELTO [Concomitant]
     Active Substance: RIVAROXABAN
     Indication: OEDEMA
     Dosage: UNK
     Dates: start: 20160520
  2. KEYTRUDA [Suspect]
     Active Substance: PEMBROLIZUMAB
     Indication: LUNG CANCER METASTATIC
     Dosage: 200 MG, Q3W
     Route: 042
     Dates: start: 20160928, end: 20160928

REACTIONS (11)
  - Decreased appetite [Unknown]
  - Asthenia [Unknown]
  - Fatigue [Unknown]
  - Fall [Unknown]
  - Muscular weakness [Unknown]
  - Oedema peripheral [Unknown]
  - Nausea [Unknown]
  - Deep vein thrombosis [Unknown]
  - Asthenia [Unknown]
  - Pyrexia [Unknown]
  - Vomiting [Unknown]

NARRATIVE: CASE EVENT DATE: 2016
